FAERS Safety Report 14826229 (Version 3)
Quarter: 2018Q2

REPORT INFORMATION
  Report Type: Spontaneous
  Country: CN (occurrence: CN)
  Receive Date: 20180430
  Receipt Date: 20180525
  Transmission Date: 20180711
  Serious: Yes (Other)
  Sender: FDA-Public Use
  Company Number: CN-MERCK KGAA-2046832

PATIENT
  Age: 48 Year
  Sex: Female

DRUGS (2)
  1. EUTHYROX 50 MCG [Suspect]
     Active Substance: LEVOTHYROXINE SODIUM
     Dates: start: 2018, end: 20180417
  2. NOVOTHYROX [Suspect]
     Active Substance: LEVOTHYROXINE SODIUM
     Indication: PRODUCT USED FOR UNKNOWN INDICATION
     Route: 048
     Dates: start: 20180316, end: 201803

REACTIONS (10)
  - Angina pectoris [Recovering/Resolving]
  - Hyperthyroidism [None]
  - Poor quality sleep [Recovering/Resolving]
  - Headache [None]
  - Heart rate increased [None]
  - Swelling [None]
  - Hypothyroidism [None]
  - Neuralgia [None]
  - Myalgia [None]
  - Discomfort [None]

NARRATIVE: CASE EVENT DATE: 2018
